FAERS Safety Report 4937655-9 (Version None)
Quarter: 2006Q1

REPORT INFORMATION
  Report Type: 
  Country: None (occurrence: None)
  Receive Date: 20060309
  Receipt Date: 20051003
  Transmission Date: 20060701
  Serious: Yes (Death)
  Sender: FDA-Public Use
  Company Number: US-MERCK-0510USA02773

PATIENT
  Age: 56 Year
  Sex: Female
  Weight: 84 kg

DRUGS (2)
  1. VIOXX [Suspect]
     Route: 048
     Dates: start: 20010820, end: 20020315
  2. VIOXX [Suspect]
     Route: 048
     Dates: start: 20010820, end: 20020315

REACTIONS (1)
  - DEATH [None]
